FAERS Safety Report 9195945 (Version 1)
Quarter: 2013Q1

REPORT INFORMATION
  Report Type: Spontaneous
  Country: US (occurrence: None)
  Receive Date: 20120703
  Receipt Date: 20120703
  Transmission Date: 20140127
  Serious: No
  Sender: FDA-Public Use
  Company Number: PHEH2012US008001

PATIENT
  Age: 58 Year
  Sex: Male

DRUGS (1)
  1. GILENYA (FTY)CAPSULE,0.5MG [Suspect]
     Indication: RELAPSING-REMITTING MULTIPLE SCLEROSIS
     Route: 048

REACTIONS (5)
  - Respiratory disorder [None]
  - Visual impairment [None]
  - Abdominal pain upper [None]
  - Vision blurred [None]
  - Diarrhoea [None]
